FAERS Safety Report 20706476 (Version 7)
Quarter: 2022Q4

REPORT INFORMATION
  Report Type: Report from Study
  Country: US (occurrence: US)
  Receive Date: 20220413
  Receipt Date: 20221121
  Transmission Date: 20230113
  Serious: Yes (Other)
  Sender: FDA-Public Use
  Company Number: US-TAKEDA-US202014567

PATIENT
  Age: 14 Year
  Sex: Female

DRUGS (2)
  1. HUMAN IMMUNOGLOBULIN G [Suspect]
     Active Substance: HUMAN IMMUNOGLOBULIN G
     Indication: Primary immunodeficiency syndrome
     Dosage: 6 GRAM, 1/WEEK
     Route: 058
  2. HUMAN IMMUNOGLOBULIN G [Suspect]
     Active Substance: HUMAN IMMUNOGLOBULIN G
     Indication: Primary immunodeficiency syndrome
     Dosage: UNK
     Route: 065

REACTIONS (19)
  - Brain oedema [Unknown]
  - Ear infection [Unknown]
  - Infusion site rash [Unknown]
  - Peripheral swelling [Unknown]
  - Fear of injection [Unknown]
  - Rash [Unknown]
  - Pain in extremity [Unknown]
  - Malaise [Unknown]
  - Pyrexia [Unknown]
  - Headache [Unknown]
  - Urticaria [Unknown]
  - Pruritus [Unknown]
  - Infusion site haemorrhage [Unknown]
  - Poor venous access [Unknown]
  - Dermatitis contact [Recovered/Resolved]
  - Needle issue [Unknown]
  - Device leakage [Unknown]
  - Product dose omission issue [Recovered/Resolved]
  - Inappropriate schedule of product administration [Unknown]

NARRATIVE: CASE EVENT DATE: 20210714
